FAERS Safety Report 7738085-7 (Version None)
Quarter: 2011Q3

REPORT INFORMATION
  Report Type: 
  Country: None (occurrence: None)
  Receive Date: 20110908
  Receipt Date: 20110825
  Transmission Date: 20111222
  Serious: Yes (Hospitalization)
  Sender: FDA-Public Use
  Company Number: US-CELGENEUS-163-21880-11033154

PATIENT
  Sex: Male

DRUGS (21)
  1. ZOFRAN [Concomitant]
     Route: 041
  2. REVLIMID [Suspect]
     Dosage: 25 MILLIGRAM
     Route: 048
     Dates: start: 20101013
  3. REVLIMID [Suspect]
     Indication: METASTATIC SQUAMOUS CELL CARCINOMA
     Dosage: 20 MILLIGRAM
     Route: 048
     Dates: start: 20110301
  4. ZOCOR [Concomitant]
     Indication: CORONARY ARTERY DISEASE
     Route: 065
  5. REVLIMID [Suspect]
  6. PHENOBARBITAL TAB [Concomitant]
     Route: 065
  7. PARAPLATIN [Concomitant]
     Route: 041
  8. ADRUCIL [Concomitant]
     Route: 041
  9. TAXOL [Concomitant]
     Route: 041
  10. ZOMETA [Concomitant]
     Route: 041
  11. ASPIRIN [Concomitant]
     Indication: CORONARY ARTERY DISEASE
     Dosage: 325 MILLIGRAM
     Route: 065
  12. DILANTIN [Concomitant]
     Route: 065
  13. PLATINOL [Concomitant]
     Route: 041
  14. LOPRESSOR [Concomitant]
     Indication: CORONARY ARTERY DISEASE
     Route: 065
  15. KEPPRA [Concomitant]
     Route: 065
  16. TAXOTERE [Concomitant]
     Route: 041
  17. HYDREA [Concomitant]
     Route: 041
  18. CETUXIMAB [Suspect]
     Dosage: 500 MILLIGRAM/SQ. METER
     Route: 065
     Dates: start: 20100101
  19. CETUXIMAB [Suspect]
     Indication: METASTATIC SQUAMOUS CELL CARCINOMA
  20. CETUXIMAB [Suspect]
  21. ERBITUX [Concomitant]
     Route: 041

REACTIONS (2)
  - FAILURE TO THRIVE [None]
  - NEUTROPENIA [None]
